FAERS Safety Report 18125580 (Version 1)
Quarter: 2020Q3

REPORT INFORMATION
  Report Type: Spontaneous
  Country: CN (occurrence: CN)
  Receive Date: 20200807
  Receipt Date: 20200807
  Transmission Date: 20201103
  Serious: Yes (Other)
  Sender: FDA-Public Use
  Company Number: CN-PFIZER INC-2020301089

PATIENT
  Age: 12 Year
  Sex: Female
  Weight: 41 kg

DRUGS (2)
  1. METHOTREXATE. [Suspect]
     Active Substance: METHOTREXATE
     Indication: LYMPHOCYTIC LEUKAEMIA
     Dosage: 3.3 G, 1X/DAY
     Route: 041
     Dates: start: 20200504, end: 20200505
  2. MERCAPTOPURINE. [Concomitant]
     Active Substance: MERCAPTOPURINE
     Indication: LYMPHOCYTIC LEUKAEMIA
     Dosage: 50 MG, 1X/DAY
     Route: 048
     Dates: start: 20200504, end: 20200510

REACTIONS (3)
  - Vomiting [Recovering/Resolving]
  - Liver injury [Recovering/Resolving]
  - Nausea [Recovering/Resolving]

NARRATIVE: CASE EVENT DATE: 20200507
